FAERS Safety Report 18445786 (Version 1)
Quarter: 2020Q4

REPORT INFORMATION
  Report Type: Spontaneous
  Country: US (occurrence: US)
  Receive Date: 20201029
  Receipt Date: 20201029
  Transmission Date: 20210114
  Serious: Yes (Life-Threatening, Hospitalization, Other)
  Sender: FDA-Public Use
  Company Number: None

PATIENT
  Age: 54 Year
  Sex: Female
  Weight: 83.25 kg

DRUGS (4)
  1. ESTRIDIOL [Concomitant]
  2. PROGESTERONE. [Concomitant]
     Active Substance: PROGESTERONE
  3. CELEBREX [Concomitant]
     Active Substance: CELECOXIB
  4. CHLORZOXAZONE. [Suspect]
     Active Substance: CHLORZOXAZONE
     Indication: BACK PAIN
     Dosage: ?          QUANTITY:1 TABLET(S);?
     Route: 048
     Dates: start: 20200615, end: 20201011

REACTIONS (3)
  - Influenza like illness [None]
  - Acute hepatic failure [None]
  - Chromaturia [None]

NARRATIVE: CASE EVENT DATE: 20201013
